FAERS Safety Report 12178784 (Version 1)
Quarter: 2016Q1

REPORT INFORMATION
  Report Type: Spontaneous
  Country: CN (occurrence: CN)
  Receive Date: 20160315
  Receipt Date: 20160315
  Transmission Date: 20160526
  Serious: Yes (Death, Other)
  Sender: FDA-Public Use
  Company Number: CN-ROCHE-1725589

PATIENT
  Sex: Male

DRUGS (1)
  1. ACTILYSE [Suspect]
     Active Substance: ALTEPLASE
     Indication: CEREBRAL INFARCTION
     Route: 065
     Dates: start: 2014

REACTIONS (4)
  - Cerebral haemorrhage [Fatal]
  - Blood pressure increased [Unknown]
  - Coma [Unknown]
  - Agitation [Unknown]

NARRATIVE: CASE EVENT DATE: 2014
